FAERS Safety Report 8340953-2 (Version None)
Quarter: 2012Q1

REPORT INFORMATION
  Report Type: 
  Country: None (occurrence: None)
  Receive Date: 20120330
  Receipt Date: 20120118
  Transmission Date: 20120608
  Serious: Yes (Other)
  Sender: FDA-Public Use
  Company Number: PHEH2012US001668

PATIENT

DRUGS (9)
  1. PREDNISONE TAB [Concomitant]
  2. VITAMINS WITH MINERALS (NO INGREDIENTS/SUBSTANCES) [Concomitant]
  3. EXELON [Suspect]
     Dosage: 95 MG/24 HOURS, 1 PATCH DAILY, TRANSDERMAL
     Route: 062
     Dates: start: 20110527
  4. LASIX [Concomitant]
  5. FOLIC ACID [Concomitant]
  6. POTASSIUM CHLORIDE [Concomitant]
  7. METFORMIN HCL [Concomitant]
  8. COLACE (DOCUSATE SODIUM) [Concomitant]
  9. REMERON (MIERTAZAPINE) [Concomitant]

REACTIONS (1)
  - HEPATIC ENZYME INCREASED [None]
